FAERS Safety Report 4706658-1 (Version None)
Quarter: 2005Q2

REPORT INFORMATION
  Report Type: 
  Country: None (occurrence: None)
  Receive Date: 20050629
  Receipt Date: 20050328
  Transmission Date: 20051028
  Serious: No
  Sender: FDA-Public Use
  Company Number: 05P-163--0295334-00

PATIENT
  Age: 77 Year
  Sex: Female
  Weight: 67.3592 kg

DRUGS (9)
  1. HUMIRA [Suspect]
     Indication: RHEUMATOID ARTHRITIS
     Dosage: 40 MG, 1 IN 2 WK, SUBCUTANEOUS
     Route: 058
     Dates: start: 20041101
  2. METHOTREXATE [Concomitant]
  3. FOLIC ACID [Concomitant]
  4. PREDNISONE TAB [Concomitant]
  5. VERAPAMIL [Concomitant]
  6. ATENOLOL [Concomitant]
  7. VENLAFAXINE HCL [Concomitant]
  8. ALENDRONATE SODIUM [Concomitant]
  9. MULTI-VITAMINS [Concomitant]

REACTIONS (2)
  - DRY MOUTH [None]
  - OEDEMA PERIPHERAL [None]
